FAERS Safety Report 25717573 (Version 1)
Quarter: 2025Q3

REPORT INFORMATION
  Report Type: Spontaneous
  Country: US (occurrence: US)
  Receive Date: 20250822
  Receipt Date: 20250822
  Transmission Date: 20251021
  Serious: No
  Sender: BRISTOL-MYERS SQUIBB COMPANY
  Company Number: US-BRISTOL-MYERS SQUIBB COMPANY-2025-117197

PATIENT
  Age: 11 Year
  Sex: Female

DRUGS (1)
  1. ORENCIA [Suspect]
     Active Substance: ABATACEPT
     Indication: Rheumatoid arthritis
     Dosage: STRENGTH: 87.5MG/0.7
     Route: 058
     Dates: start: 202504

REACTIONS (6)
  - Peripheral swelling [Unknown]
  - Arthralgia [Unknown]
  - Cyanosis [Unknown]
  - Joint swelling [Unknown]
  - Oligomenorrhoea [Unknown]
  - Menstruation irregular [Unknown]

NARRATIVE: CASE EVENT DATE: 20250820
